FAERS Safety Report 10693981 (Version 2)
Quarter: 2015Q1

REPORT INFORMATION
  Report Type: Spontaneous
  Country: US (occurrence: US)
  Receive Date: 20150106
  Receipt Date: 20150106
  Transmission Date: 20150721
  Serious: No
  Sender: FDA-Public Use
  Company Number: US-009507513-1110USA03604

PATIENT
  Sex: Male

DRUGS (2)
  1. FINASTERIDE. [Suspect]
     Active Substance: FINASTERIDE
     Route: 048
  2. PROPECIA [Suspect]
     Active Substance: FINASTERIDE
     Indication: ALOPECIA
     Dosage: 1 MG, QD
     Route: 048
     Dates: start: 2000, end: 2012

REACTIONS (19)
  - Cognitive disorder [Unknown]
  - Urinary casts [Unknown]
  - Arthroscopy [Unknown]
  - Rectal examination abnormal [Unknown]
  - Ejaculation disorder [Unknown]
  - Generalised anxiety disorder [Not Recovered/Not Resolved]
  - Libido decreased [Unknown]
  - Headache [Unknown]
  - Erectile dysfunction [Unknown]
  - Ejaculation failure [Unknown]
  - Drug ineffective [Unknown]
  - Depression [Not Recovered/Not Resolved]
  - Drug ineffective [Unknown]
  - Peyronie^s disease [Unknown]
  - Sexual dysfunction [Unknown]
  - Loss of libido [Unknown]
  - Trance [Unknown]
  - Painful ejaculation [Unknown]
  - Therapeutic procedure [Unknown]

NARRATIVE: CASE EVENT DATE: 2008
